FAERS Safety Report 7801339-X (Version None)
Quarter: 2011Q4

REPORT INFORMATION
  Report Type: 
  Country: None (occurrence: None)
  Receive Date: 20111007
  Receipt Date: 20110928
  Transmission Date: 20120403
  Serious: No
  Sender: FDA-Public Use
  Company Number: US-PFIZER INC-2011232606

PATIENT
  Sex: Male
  Weight: 92.971 kg

DRUGS (2)
  1. CIALIS [Suspect]
  2. VIAGRA [Suspect]
     Indication: ERECTILE DYSFUNCTION
     Dosage: 50 MG, UNK
     Route: 048
     Dates: start: 20110101, end: 20110901

REACTIONS (3)
  - ANXIETY [None]
  - POOR QUALITY SLEEP [None]
  - INSOMNIA [None]
